FAERS Safety Report 8101972-4 (Version None)
Quarter: 2012Q1

REPORT INFORMATION
  Report Type: 
  Country: None (occurrence: None)
  Receive Date: 20120131
  Receipt Date: 20120124
  Transmission Date: 20120608
  Serious: Yes (Other)
  Sender: FDA-Public Use
  Company Number: GB-ASTRAZENECA-2012SE04922

PATIENT
  Age: 63 Year
  Sex: Female

DRUGS (1)
  1. FASLODEX [Suspect]
     Indication: HORMONE THERAPY
     Route: 030
     Dates: start: 20100101

REACTIONS (6)
  - DIZZINESS [None]
  - SKIN BURNING SENSATION [None]
  - COUGH [None]
  - GINGIVAL PAIN [None]
  - PARAESTHESIA [None]
  - SNEEZING [None]
